FAERS Safety Report 17377203 (Version 1)
Quarter: 2020Q1

REPORT INFORMATION
  Report Type: Spontaneous
  Country: US (occurrence: US)
  Receive Date: 20200205
  Receipt Date: 20200205
  Transmission Date: 20200409
  Serious: Yes (Other)
  Sender: FDA-Public Use
  Company Number: None

PATIENT
  Age: 69 Year
  Sex: Female
  Weight: 61.2 kg

DRUGS (9)
  1. CEQUA [Suspect]
     Active Substance: CYCLOSPORINE
     Indication: CORNEAL DYSTROPHY
     Dosage: ?          QUANTITY:1 DROP(S);?
     Route: 047
     Dates: start: 20191213, end: 20200115
  2. SUMATRIPTAN. [Concomitant]
     Active Substance: SUMATRIPTAN
  3. VITAMIN D [Concomitant]
     Active Substance: VITAMIN D NOS
  4. LEVOTHYROXINE. [Concomitant]
     Active Substance: LEVOTHYROXINE
  5. MAGNESIUM [Concomitant]
     Active Substance: MAGNESIUM
  6. CEQUA [Suspect]
     Active Substance: CYCLOSPORINE
     Indication: DRY EYE
     Dosage: ?          QUANTITY:1 DROP(S);?
     Route: 047
     Dates: start: 20191213, end: 20200115
  7. FIBERCON [Concomitant]
     Active Substance: CALCIUM POLYCARBOPHIL
  8. MULTIVITAMIN [Concomitant]
     Active Substance: VITAMINS
  9. HYDROEYE [Concomitant]
     Active Substance: MINERALS\OMEGA-3 FATTY ACIDS\VITAMINS

REACTIONS (1)
  - Eye pain [None]

NARRATIVE: CASE EVENT DATE: 20191213
